FAERS Safety Report 10087261 (Version 4)
Quarter: 2014Q3

REPORT INFORMATION
  Report Type: Other
  Country: US (occurrence: US)
  Receive Date: 20140418
  Receipt Date: 20140908
  Transmission Date: 20150326
  Serious: Yes (Death, Other)
  Sender: FDA-Public Use
  Company Number: US-ACORDA-ACO_35854_2013

PATIENT
  Age: 43 Year
  Sex: Female
  Weight: 56.69 kg

DRUGS (8)
  1. ARMODAFINIL. [Concomitant]
     Active Substance: ARMODAFINIL
     Indication: FATIGUE
     Dosage: UNK
     Route: 048
     Dates: start: 20110711
  2. AVONEX [Concomitant]
     Active Substance: INTERFERON BETA-1A
     Indication: PRODUCT USED FOR UNKNOWN INDICATION
     Dosage: UNK
     Route: 065
  3. CYMBALTA [Suspect]
     Active Substance: DULOXETINE HYDROCHLORIDE
     Indication: PRODUCT USED FOR UNKNOWN INDICATION
     Dosage: 120 MG, QD
     Route: 048
  4. AMPYRA [Suspect]
     Active Substance: DALFAMPRIDINE
     Indication: MULTIPLE SCLEROSIS
     Dosage: 10 MG, BID
     Route: 048
     Dates: start: 20100706, end: 2013
  5. VITAMIN D [Concomitant]
     Active Substance: CHOLECALCIFEROL
     Indication: PRODUCT USED FOR UNKNOWN INDICATION
     Dosage: UNK
     Route: 065
  6. ATIVAN [Concomitant]
     Active Substance: LORAZEPAM
     Indication: PRODUCT USED FOR UNKNOWN INDICATION
     Dosage: UNK
     Route: 065
  7. MAGNESIUM [Concomitant]
     Active Substance: MAGNESIUM
     Indication: NIGHT SWEATS
     Dosage: 250 MG, QD
  8. BACLOFEN. [Concomitant]
     Active Substance: BACLOFEN
     Indication: PRODUCT USED FOR UNKNOWN INDICATION
     Dosage: 10 MG, QD

REACTIONS (20)
  - Completed suicide [Fatal]
  - Blood urea nitrogen/creatinine ratio increased [Unknown]
  - Fatigue [Unknown]
  - Pain [Unknown]
  - Sinusitis [Unknown]
  - Paraesthesia [Unknown]
  - Monocyte percentage increased [Unknown]
  - Movement disorder [Unknown]
  - Anxiety [Unknown]
  - Glomerular filtration rate increased [Unknown]
  - Gait disturbance [Unknown]
  - Fluid retention [Unknown]
  - Red cell distribution width decreased [Unknown]
  - Swelling [Unknown]
  - Drug ineffective [Unknown]
  - Basophil percentage increased [Unknown]
  - Upper respiratory tract infection [Unknown]
  - Weight increased [Unknown]
  - Sinus disorder [Unknown]
  - Sleep disorder [Unknown]

NARRATIVE: CASE EVENT DATE: 20111005
